FAERS Safety Report 8190826-3 (Version None)
Quarter: 2012Q1

REPORT INFORMATION
  Report Type: 
  Country: None (occurrence: None)
  Receive Date: 20120221
  Receipt Date: 20111026
  Transmission Date: 20120608
  Serious: No
  Sender: FDA-Public Use
  Company Number: 1000024995

PATIENT
  Age: 47 Year
  Sex: Female

DRUGS (7)
  1. VIIBRYD [Suspect]
     Indication: DEPRESSION
     Dosage: 10 MG (10 MG, 1 IN 1 D),ORAL, 20 MG (20 MG, 1 IN 1 D),ORAL
     Route: 048
     Dates: start: 20111016, end: 20111022
  2. LISINOPRIL [Concomitant]
  3. NEXIUM [Concomitant]
  4. AMBIEN [Concomitant]
  5. METFORMIN HCL [Concomitant]
  6. KLONOPIN [Concomitant]
  7. VICTOZA (LIRAGLUTIDE) (LIRAGLUTIDE) [Concomitant]

REACTIONS (1)
  - HEADACHE [None]
